FAERS Safety Report 18264042 (Version 5)
Quarter: 2020Q3

REPORT INFORMATION
  Report Type: Spontaneous
  Country: US (occurrence: US)
  Receive Date: 20200914
  Receipt Date: 20200930
  Transmission Date: 20201103
  Serious: Yes (Hospitalization, Other)
  Sender: FDA-Public Use
  Company Number: US-PFIZER INC-2020354256

PATIENT
  Age: 25 Year
  Sex: Female

DRUGS (2)
  1. LYRICA [Interacting]
     Active Substance: PREGABALIN
     Indication: MYALGIA
     Dosage: 75 MG, 2X/DAY (75MG CAPS)
     Dates: start: 201007
  2. LYRICA [Suspect]
     Active Substance: PREGABALIN
     Indication: NEURALGIA
     Dosage: 40 MG, DAILY; (20MG X 2 DAILY)

REACTIONS (9)
  - Generalised tonic-clonic seizure [Recovered/Resolved]
  - Drug interaction [Recovered/Resolved]
  - Muscle spasms [Not Recovered/Not Resolved]
  - Fatigue [Recovered/Resolved]
  - Memory impairment [Recovered/Resolved]
  - Dependence [Recovered/Resolved]
  - Seizure [Recovered/Resolved]
  - Loss of consciousness [Recovered/Resolved]
  - Sleep disorder [Recovered/Resolved]

NARRATIVE: CASE EVENT DATE: 2002
